FAERS Safety Report 25004733 (Version 1)
Quarter: 2025Q1

REPORT INFORMATION
  Report Type: Spontaneous
  Country: CA (occurrence: CA)
  Receive Date: 20250224
  Receipt Date: 20250224
  Transmission Date: 20250408
  Serious: Yes (Hospitalization)
  Sender: CSL BEHRING
  Company Number: CA-BEH-2025196494

PATIENT
  Age: 68 Year
  Sex: Male

DRUGS (2)
  1. HUMAN IMMUNOGLOBULIN G [Suspect]
     Active Substance: HUMAN IMMUNOGLOBULIN G
     Indication: Secondary immunodeficiency
     Dosage: 6 G, QW
     Route: 065
  2. HUMAN IMMUNOGLOBULIN G [Suspect]
     Active Substance: HUMAN IMMUNOGLOBULIN G
     Dosage: UNK, QW
     Route: 058

REACTIONS (3)
  - Cartilage graft [Unknown]
  - Heart rate increased [Unknown]
  - Off label use [Unknown]
